FAERS Safety Report 4686639-7 (Version None)
Quarter: 2005Q2

REPORT INFORMATION
  Report Type: 
  Country: None (occurrence: None)
  Receive Date: 20050608
  Receipt Date: 20050525
  Transmission Date: 20051028
  Serious: Yes (Hospitalization)
  Sender: FDA-Public Use
  Company Number: 1515-095-2

PATIENT
  Age: 31 Year
  Sex: Female

DRUGS (1)
  1. VENOFER [Suspect]
     Indication: ANAEMIA
     Dosage: 300MG IV
     Route: 042
     Dates: start: 20050416

REACTIONS (2)
  - INJECTION SITE PHLEBITIS [None]
  - THROMBOPHLEBITIS SUPERFICIAL [None]
